FAERS Safety Report 25559502 (Version 1)
Quarter: 2025Q3

REPORT INFORMATION
  Report Type: Spontaneous
  Country: US (occurrence: US)
  Receive Date: 20250715
  Receipt Date: 20250715
  Transmission Date: 20251020
  Serious: No
  Sender: NOVO NORDISK
  Company Number: US-NOVOPROD-1418437

PATIENT

DRUGS (1)
  1. OZEMPIC [Suspect]
     Active Substance: SEMAGLUTIDE
     Indication: Product used for unknown indication

REACTIONS (8)
  - Micturition urgency [Unknown]
  - Swelling face [Unknown]
  - Blood glucose increased [Unknown]
  - Abdominal discomfort [Unknown]
  - Dizziness [Unknown]
  - Headache [Unknown]
  - Off label use [Not Recovered/Not Resolved]
  - Device malfunction [Unknown]
